FAERS Safety Report 13667976 (Version 1)
Quarter: 2017Q2

REPORT INFORMATION
  Report Type: Spontaneous
  Country: US (occurrence: US)
  Receive Date: 20170619
  Receipt Date: 20170619
  Transmission Date: 20170830
  Serious: Yes (Hospitalization, Disabling, Other)
  Sender: FDA-Public Use
  Company Number: None

PATIENT
  Age: 52 Year
  Sex: Female
  Weight: 47.7 kg

DRUGS (4)
  1. VITAMIN B12 [Concomitant]
     Active Substance: CYANOCOBALAMIN
  2. VITAMIN D [Concomitant]
     Active Substance: CHOLECALCIFEROL
  3. MIDODRINE AFO^S [Concomitant]
  4. CLONAZEPAM. [Suspect]
     Active Substance: CLONAZEPAM
     Indication: RESTLESS LEGS SYNDROME
     Dosage: ?          QUANTITY:3 TABLET(S);?AT BEDTIME ORAL
     Route: 048
     Dates: start: 19920228, end: 20160320

REACTIONS (6)
  - Drug withdrawal syndrome [None]
  - Abasia [None]
  - Blepharospasm [None]
  - Therapy change [None]
  - Impaired driving ability [None]
  - Postural orthostatic tachycardia syndrome [None]

NARRATIVE: CASE EVENT DATE: 20130513
